FAERS Safety Report 9581790 (Version 1)
Quarter: 2013Q4

REPORT INFORMATION
  Report Type: Report from Study
  Country: CA (occurrence: CA)
  Receive Date: 20131002
  Receipt Date: 20131002
  Transmission Date: 20140711
  Serious: Yes (Other)
  Sender: FDA-Public Use
  Company Number: CA-ABBVIE-13P-028-1153072-00

PATIENT
  Age: 78 Year
  Sex: Female

DRUGS (1)
  1. HUMIRA [Suspect]
     Indication: RHEUMATOID ARTHRITIS
     Route: 058
     Dates: start: 20130703

REACTIONS (4)
  - Lumbar vertebral fracture [Not Recovered/Not Resolved]
  - Back pain [Recovering/Resolving]
  - Fall [Unknown]
  - Pain in extremity [Unknown]
